FAERS Safety Report 5335340-5 (Version None)
Quarter: 2007Q2

REPORT INFORMATION
  Report Type: 
  Country: None (occurrence: None)
  Receive Date: 20070327
  Receipt Date: 20060908
  Transmission Date: 20071010
  Serious: Yes (Other)
  Sender: FDA-Public Use
  Company Number: 8018779

PATIENT
  Sex: Male

DRUGS (2)
  1. LORTAB [Suspect]
     Indication: PAIN
     Dosage: 5 MG
  2. LORTAB [Suspect]
     Indication: PAIN
     Dosage: 10 MG

REACTIONS (1)
  - DRUG DEPENDENCE [None]
